FAERS Safety Report 9557302 (Version 1)
Quarter: 2013Q3

REPORT INFORMATION
  Report Type: Spontaneous
  Country: US (occurrence: None)
  Receive Date: 20130815
  Receipt Date: 20130815
  Transmission Date: 20140515
  Serious: Yes (Other)
  Sender: FDA-Public Use
  Company Number: ADR-2012-02045

PATIENT
  Sex: Male

DRUGS (2)
  1. BACLOFEN UNKNOWN (BACLOFEN INTRATHECAL) [Suspect]
     Indication: PAIN
  2. BACLOFEN UNKNOWN (BACLOFEN INTRATHECAL) [Suspect]
     Indication: POST LAMINECTOMY SYNDROME

REACTIONS (2)
  - Road traffic accident [None]
  - Mental impairment [None]
